FAERS Safety Report 25842616 (Version 2)
Quarter: 2025Q4

REPORT INFORMATION
  Report Type: Spontaneous
  Country: EU (occurrence: EU)
  Receive Date: 20250924
  Receipt Date: 20251001
  Transmission Date: 20260118
  Serious: No
  Sender: MYLAN
  Company Number: EU-PFIZER INC-PV202500110015

PATIENT
  Age: 49 Year
  Sex: Female

DRUGS (8)
  1. METHOTREXATE [Suspect]
     Active Substance: METHOTREXATE
     Indication: Rheumatoid arthritis
     Dosage: 15 MILLIGRAM, QW (WEEKLY)
  2. METHOTREXATE [Suspect]
     Active Substance: METHOTREXATE
     Dosage: 15 MILLIGRAM, QW (WEEKLY)
  3. METHOTREXATE [Suspect]
     Active Substance: METHOTREXATE
     Dosage: 15 MILLIGRAM, QW (WEEKLY)
     Route: 065
  4. METHOTREXATE [Suspect]
     Active Substance: METHOTREXATE
     Dosage: 15 MILLIGRAM, QW (WEEKLY)
     Route: 065
  5. METHOTREXATE [Suspect]
     Active Substance: METHOTREXATE
     Dosage: 20 MILLIGRAM, QW (WEEKLY)
  6. METHOTREXATE [Suspect]
     Active Substance: METHOTREXATE
     Dosage: 20 MILLIGRAM, QW (WEEKLY)
  7. METHOTREXATE [Suspect]
     Active Substance: METHOTREXATE
     Dosage: 20 MILLIGRAM, QW (WEEKLY)
     Route: 065
  8. METHOTREXATE [Suspect]
     Active Substance: METHOTREXATE
     Dosage: 20 MILLIGRAM, QW (WEEKLY)
     Route: 065

REACTIONS (1)
  - No adverse event [Recovered/Resolved]
